FAERS Safety Report 12294776 (Version 2)
Quarter: 2016Q2

REPORT INFORMATION
  Report Type: Spontaneous
  Country: US (occurrence: US)
  Receive Date: 20160422
  Receipt Date: 20160516
  Transmission Date: 20160815
  Serious: No
  Sender: FDA-Public Use
  Company Number: US-PFIZER INC-2016208836

PATIENT
  Age: 32 Year
  Sex: Female
  Weight: 101.6 kg

DRUGS (22)
  1. CARAFATE [Concomitant]
     Active Substance: SUCRALFATE
     Indication: VOMITING
  2. PREDNISONE. [Concomitant]
     Active Substance: PREDNISONE
     Dosage: UNK
  3. WELCHOL [Concomitant]
     Active Substance: COLESEVELAM HYDROCHLORIDE
     Dosage: 625 MG, AS NEEDED
  4. ZOFRAN [Concomitant]
     Active Substance: ONDANSETRON HYDROCHLORIDE
     Indication: NAUSEA
     Dosage: 4 MG, AS NEEDED (Q 8 HRS)
     Dates: start: 20160205
  5. CARAFATE [Concomitant]
     Active Substance: SUCRALFATE
     Indication: NAUSEA
  6. LYRICA [Suspect]
     Active Substance: PREGABALIN
     Indication: FIBROMYALGIA
     Dosage: 75 MG CAPSULES, THREE TIMES PER DAY
     Route: 048
     Dates: start: 20150717
  7. CAPSAICIN. [Concomitant]
     Active Substance: CAPSAICIN
     Indication: SCIATICA
     Dosage: UNK, 3X/DAY, (0.1%)
     Dates: start: 20160107
  8. CLOBETASOL PROPIONATE. [Concomitant]
     Active Substance: CLOBETASOL PROPIONATE
     Indication: DERMATITIS PSORIASIFORM
     Dosage: UNK, DAILY, (0.05%)
     Dates: start: 20151023
  9. PREDNISONE. [Concomitant]
     Active Substance: PREDNISONE
     Indication: DERMATITIS PSORIASIFORM
     Dosage: 30 MG, DAILY
     Dates: start: 20151023
  10. PANTOPRAZOLE SODIUM. [Concomitant]
     Active Substance: PANTOPRAZOLE SODIUM
     Dosage: 40 MG, 1X/DAY
     Route: 048
     Dates: start: 20160210
  11. KLONOPIN [Concomitant]
     Active Substance: CLONAZEPAM
     Indication: DEPRESSION
  12. ZOFRAN [Concomitant]
     Active Substance: ONDANSETRON HYDROCHLORIDE
     Indication: VOMITING
  13. ATENOLOL. [Concomitant]
     Active Substance: ATENOLOL
     Dosage: 25 MG, 2X/DAY
     Dates: start: 20160119
  14. CELEXA [Concomitant]
     Active Substance: CITALOPRAM HYDROBROMIDE
     Indication: ANXIETY DISORDER
     Dosage: 40 MG, 1X/DAY
     Dates: start: 20160107
  15. TOPAMAX [Concomitant]
     Active Substance: TOPIRAMATE
     Indication: MIGRAINE WITH AURA
     Dosage: 50 MG, AS NEEDED, (DAILY)
     Dates: start: 20151023
  16. KLONOPIN [Concomitant]
     Active Substance: CLONAZEPAM
     Indication: ANXIETY
     Dosage: 0.5 MG, 2X/DAY
     Dates: start: 20160205
  17. BACLOFEN. [Concomitant]
     Active Substance: BACLOFEN
     Indication: SCIATICA
     Dosage: 10 MG, 2X/DAY
     Dates: start: 20160205
  18. NAPROXEN. [Concomitant]
     Active Substance: NAPROXEN
     Dosage: 500 MG, 2X/DAY, (WITH FOOD)
     Dates: start: 20160129
  19. AQUAPHOR [Concomitant]
     Active Substance: PETROLATUM
     Indication: DERMATITIS PSORIASIFORM
     Dosage: 1 DF, DAILY, (TEASPOON)
     Dates: start: 20151023
  20. RELPAX [Concomitant]
     Active Substance: ELETRIPTAN HYDROBROMIDE
     Indication: MIGRAINE
     Dosage: 40 MG TABLET, AS NEEDED
     Route: 048
     Dates: start: 20150702
  21. CARAFATE [Concomitant]
     Active Substance: SUCRALFATE
     Indication: GASTRIC ULCER
     Dosage: 1 G, 3X/DAY, (EMPTY STOMACH)
     Dates: start: 20160205
  22. ESTRACE [Concomitant]
     Active Substance: ESTRADIOL
     Indication: POLYCYSTIC OVARIES
     Dosage: 2 MG, 1X/DAY
     Dates: start: 20160107

REACTIONS (1)
  - Pain [Not Recovered/Not Resolved]

NARRATIVE: CASE EVENT DATE: 201603
